FAERS Safety Report 23027187 (Version 1)
Quarter: 2023Q4

REPORT INFORMATION
  Report Type: Report from Study
  Country: IT (occurrence: IT)
  Receive Date: 20231004
  Receipt Date: 20231004
  Transmission Date: 20240110
  Serious: Yes (Other)
  Sender: FDA-Public Use
  Company Number: IT-GILEAD-2023-0643809

PATIENT
  Age: 42 Year
  Sex: Male

DRUGS (3)
  1. EMTRICITABINE\TENOFOVIR [Suspect]
     Active Substance: EMTRICITABINE\TENOFOVIR
     Indication: HIV infection
     Dosage: UNK
     Route: 065
  2. RALTEGRAVIR [Suspect]
     Active Substance: RALTEGRAVIR
     Indication: HIV infection
     Dosage: UNK
     Route: 065
  3. SILYMARINE [Concomitant]
     Indication: Performance enhancing product use
     Dosage: UNK

REACTIONS (1)
  - Transaminases increased [Recovered/Resolved]
